FAERS Safety Report 10412707 (Version 8)
Quarter: 2015Q2

REPORT INFORMATION
  Report Type: Report from Study
  Country: NO (occurrence: NO)
  Receive Date: 20140827
  Receipt Date: 20150618
  Transmission Date: 20150821
  Serious: Yes (Life-Threatening, Hospitalization)
  Sender: FDA-Public Use
  Company Number: NO-ROCHE-1215880

PATIENT
  Age: 61 Year
  Sex: Male
  Weight: 86.4 kg

DRUGS (19)
  1. CETIRIZIN [Concomitant]
     Active Substance: CETIRIZINE HYDROCHLORIDE
     Route: 065
     Dates: start: 20130306, end: 20130410
  2. PARACET (NORWAY) [Concomitant]
     Route: 065
     Dates: start: 20130320, end: 20130320
  3. OXYNORM [Concomitant]
     Active Substance: OXYCODONE HYDROCHLORIDE
     Indication: ERYTHEMA
     Route: 065
     Dates: start: 20130413, end: 20130413
  4. AMOXICILLIN. [Concomitant]
     Active Substance: AMOXICILLIN
     Indication: PHARYNGITIS
     Route: 065
     Dates: start: 20130315, end: 20130321
  5. RITUXIMAB [Suspect]
     Active Substance: RITUXIMAB
     Indication: NON-HODGKIN^S LYMPHOMA
     Route: 058
     Dates: start: 20130410, end: 20130410
  6. PARACET (NORWAY) [Concomitant]
     Indication: INFUSION RELATED REACTION
     Route: 065
     Dates: start: 20130314, end: 20130314
  7. GENTAMYCIN [Concomitant]
     Active Substance: GENTAMICIN
     Indication: PHARYNGITIS
     Route: 065
     Dates: start: 20130313, end: 20130315
  8. PARACET (NORWAY) [Concomitant]
     Indication: HEADACHE
     Route: 065
     Dates: start: 20130306, end: 20130410
  9. OMNIC [Concomitant]
     Active Substance: TAMSULOSIN HYDROCHLORIDE
     Indication: URINARY RETENTION
     Route: 065
     Dates: start: 20130316, end: 20130318
  10. IMOVANE [Concomitant]
     Active Substance: ZOPICLONE
     Indication: INSOMNIA
     Route: 065
     Dates: start: 20130321, end: 20130321
  11. FINASTERID [Concomitant]
     Indication: HAEMATURIA
     Route: 065
     Dates: start: 20130320
  12. LAKTULOSE [Concomitant]
     Indication: CONSTIPATION
     Route: 065
     Dates: start: 20130320
  13. PARACET (NORWAY) [Concomitant]
     Route: 065
     Dates: start: 20130315, end: 20130315
  14. PARACET (NORWAY) [Concomitant]
     Route: 065
     Dates: start: 20130506, end: 20130506
  15. RITUXIMAB [Suspect]
     Active Substance: RITUXIMAB
     Indication: NON-HODGKIN^S LYMPHOMA
     Route: 042
     Dates: start: 20130306
  16. RITUXIMAB [Suspect]
     Active Substance: RITUXIMAB
     Dosage: DATE OF LAST DOSE PRIOR TO SAE ON 10/APR/2013.
     Route: 042
     Dates: start: 20130410
  17. PARACET (NORWAY) [Concomitant]
     Route: 065
     Dates: start: 20130321, end: 20130321
  18. OXYCONTIN [Concomitant]
     Active Substance: OXYCODONE HYDROCHLORIDE
     Indication: ERYTHEMA
     Route: 065
     Dates: start: 20130414
  19. SOMAC [Concomitant]
     Active Substance: PANTOPRAZOLE SODIUM
     Route: 065
     Dates: start: 20130414

REACTIONS (4)
  - Chills [Recovered/Resolved]
  - Hypotension [Recovered/Resolved]
  - Febrile neutropenia [Recovered/Resolved]
  - Erythema [Recovered/Resolved]

NARRATIVE: CASE EVENT DATE: 20130410
